FAERS Safety Report 4358902-0 (Version None)
Quarter: 2004Q2

REPORT INFORMATION
  Report Type: 
  Country: None (occurrence: None)
  Receive Date: 20040517
  Receipt Date: 20030130
  Transmission Date: 20050107
  Serious: Yes (Other)
  Sender: FDA-Public Use
  Company Number: PHEH2003US01148

PATIENT
  Age: 58 Year
  Sex: Male

DRUGS (25)
  1. AREDIA [Suspect]
     Indication: MULTIPLE MYELOMA
     Dosage: UNK, UNK
     Route: 042
     Dates: start: 19990802
  2. ZOMETA [Suspect]
     Indication: MULTIPLE MYELOMA
     Dosage: 2 MG/Q4WKS
     Route: 042
     Dates: start: 20020927, end: 20030214
  3. ZOMETA [Suspect]
     Dosage: 2 MG/Q8WKS
     Route: 042
     Dates: start: 20030416, end: 20030610
  4. ZOMETA [Suspect]
     Dosage: 4 MG, ONCE/SINGLE
     Route: 042
     Dates: start: 20030409, end: 20030409
  5. ASPIRIN [Concomitant]
  6. PRINIVIL [Concomitant]
  7. ZOCOR [Concomitant]
  8. TOPROL-XL [Concomitant]
  9. EFFEXOR XR [Concomitant]
  10. VALTRAX [Concomitant]
  11. CALCIUM [Concomitant]
  12. NORTRIPTYLINE HCL [Concomitant]
  13. COLCHICINE W/PROBENECID [Concomitant]
  14. PERCOCET [Concomitant]
  15. PROBENECID [Concomitant]
  16. ADRIAMYCIN PFS [Concomitant]
     Indication: MULTIPLE MYELOMA
     Dates: start: 19990629, end: 20000204
  17. VINCRISTINE [Concomitant]
     Indication: MULTIPLE MYELOMA
     Dates: start: 19990629, end: 20000204
  18. DECADRON [Concomitant]
     Dates: start: 19990629, end: 20020426
  19. THALIDOMIDE [Concomitant]
     Dates: start: 20020324, end: 20020426
  20. CYTOXAN [Concomitant]
     Dates: start: 20000414, end: 20000822
  21. ETOPOSIDE [Concomitant]
     Dates: start: 20000414, end: 20000822
  22. CISPLATIN [Concomitant]
     Dates: start: 20000822, end: 20001125
  23. MELPHALAN [Concomitant]
  24. TAXOL [Concomitant]
     Dates: start: 20001124
  25. POLYGAM [Concomitant]
     Dates: start: 20020603, end: 20031009

REACTIONS (11)
  - ASEPTIC NECROSIS BONE [None]
  - BONE SCAN ABNORMAL [None]
  - GRANULOMA [None]
  - IMPAIRED HEALING [None]
  - MANDIBULECTOMY [None]
  - NECROSIS [None]
  - NUCLEAR MAGNETIC RESONANCE IMAGING ABNORMAL [None]
  - OSTEOMYELITIS [None]
  - OSTEONECROSIS [None]
  - SEQUESTRECTOMY [None]
  - TOOTH EXTRACTION [None]
